FAERS Safety Report 18923633 (Version 3)
Quarter: 2021Q3

REPORT INFORMATION
  Report Type: Spontaneous
  Country: US (occurrence: US)
  Receive Date: 20210222
  Receipt Date: 20210729
  Transmission Date: 20211014
  Serious: Yes (Other)
  Sender: FDA-Public Use
  Company Number: US-ASTRAZENECA-2021A074126

PATIENT
  Sex: Female

DRUGS (83)
  1. NEXIUM [Suspect]
     Active Substance: ESOMEPRAZOLE MAGNESIUM
     Indication: GASTROOESOPHAGEAL REFLUX DISEASE
     Route: 048
  2. OMEPRAZOLE. [Suspect]
     Active Substance: OMEPRAZOLE
     Indication: GASTROOESOPHAGEAL REFLUX DISEASE
     Dosage: GENERIC
     Route: 048
     Dates: start: 20190318, end: 20190408
  3. OMEPRAZOLE TABLET [Suspect]
     Active Substance: OMEPRAZOLE
     Indication: GASTROOESOPHAGEAL REFLUX DISEASE
     Dosage: GENERIC
     Route: 065
  4. DEXILANT [Suspect]
     Active Substance: DEXLANSOPRAZOLE
     Indication: GASTROOESOPHAGEAL REFLUX DISEASE
     Route: 065
  5. DEXILANT [Suspect]
     Active Substance: DEXLANSOPRAZOLE
     Indication: GASTROOESOPHAGEAL REFLUX DISEASE
     Dosage: DEXLANSOPRAZOLE
     Route: 065
  6. PANTOPRAZOLE TABLET [Suspect]
     Active Substance: PANTOPRAZOLE
     Indication: GASTROOESOPHAGEAL REFLUX DISEASE
     Route: 042
     Dates: start: 201901, end: 201903
  7. LISINOPRIL. [Concomitant]
     Active Substance: LISINOPRIL
     Dates: start: 201510, end: 20190319
  8. RANITIDINE. [Concomitant]
     Active Substance: RANITIDINE
     Dates: start: 201507, end: 201905
  9. MILK OF MAGNESIA [Concomitant]
     Active Substance: MAGNESIUM HYDROXIDE
     Dosage: UNKNOWN
  10. METFORMIN/EMPAGLIFLOZIN [Concomitant]
     Dosage: UNKNOWN
  11. DIAZEPAM. [Concomitant]
     Active Substance: DIAZEPAM
     Dosage: UNKNOWN
  12. ENOXAPARIN [Concomitant]
     Active Substance: ENOXAPARIN
     Dosage: UNKNOWN
  13. NOVOLOG [Concomitant]
     Active Substance: INSULIN ASPART
     Dosage: UNKNOWN
     Dates: start: 20160723
  14. NAPROXEN. [Concomitant]
     Active Substance: NAPROXEN
     Dates: start: 200901, end: 201905
  15. PROMETHAZINE [Concomitant]
     Active Substance: PROMETHAZINE HYDROCHLORIDE
     Dosage: UNKNOWN
  16. SORBITOL. [Concomitant]
     Active Substance: SORBITOL
     Dosage: UNKNOWN
  17. ATORVASTATIN [Concomitant]
     Active Substance: ATORVASTATIN
     Dosage: UNKNOWN
     Dates: start: 20160723
  18. AMITIZA [Concomitant]
     Active Substance: LUBIPROSTONE
     Dosage: UNKNOWN
     Dates: start: 20160723
  19. XOPENEX [Concomitant]
     Active Substance: LEVALBUTEROL HYDROCHLORIDE
     Dosage: UNKNOWN
     Dates: start: 20160723
  20. FOLIC ACID. [Concomitant]
     Active Substance: FOLIC ACID
     Dosage: UNKNOWN
     Dates: start: 20160723
  21. GLIMEPIRIDE. [Concomitant]
     Active Substance: GLIMEPIRIDE
     Dosage: UNKNOWN
     Dates: start: 20160723
  22. PROTONIX [Suspect]
     Active Substance: PANTOPRAZOLE SODIUM
     Indication: PRODUCT USED FOR UNKNOWN INDICATION
     Route: 065
  23. PANTOPRAZOLE [Suspect]
     Active Substance: PANTOPRAZOLE
     Indication: GASTROOESOPHAGEAL REFLUX DISEASE
     Route: 042
     Dates: start: 201901, end: 201903
  24. AMOXICILLIN. [Concomitant]
     Active Substance: AMOXICILLIN
     Dates: start: 201212, end: 201411
  25. SPIRONOLACTONE. [Concomitant]
     Active Substance: SPIRONOLACTONE
     Dates: start: 201202, end: 201411
  26. HYDROCHLOROTHIAZIDE. [Concomitant]
     Active Substance: HYDROCHLOROTHIAZIDE
     Dates: start: 201304, end: 201505
  27. SODIUM CHLORIDE. [Concomitant]
     Active Substance: SODIUM CHLORIDE
     Dosage: UNKNOWN
  28. ZOLPIDEM TARTRATE. [Concomitant]
     Active Substance: ZOLPIDEM TARTRATE
     Dosage: UNKNOWN
  29. PIPERACILLIN. [Concomitant]
     Active Substance: PIPERACILLIN SODIUM
     Dosage: UNKNOWN
  30. METORMIN [Concomitant]
     Active Substance: METFORMIN HYDROCHLORIDE
     Dosage: UNKNOWN
  31. PREDNISONE. [Concomitant]
     Active Substance: PREDNISONE
     Dosage: UNKNOWN
     Dates: start: 20160723
  32. DICLOFENAC SODIUM. [Concomitant]
     Active Substance: DICLOFENAC SODIUM
     Dosage: UNKNOWN
     Dates: start: 20160723
  33. NEXIUM [Suspect]
     Active Substance: ESOMEPRAZOLE MAGNESIUM
     Indication: GASTROOESOPHAGEAL REFLUX DISEASE
     Route: 048
     Dates: start: 2001, end: 201501
  34. NEXIUM [Suspect]
     Active Substance: ESOMEPRAZOLE MAGNESIUM
     Indication: GASTROOESOPHAGEAL REFLUX DISEASE
     Route: 048
     Dates: start: 20130816, end: 20150330
  35. NEXIUM [Suspect]
     Active Substance: ESOMEPRAZOLE MAGNESIUM
     Indication: GASTROOESOPHAGEAL REFLUX DISEASE
     Route: 048
     Dates: start: 2001, end: 201505
  36. NEXIUM 24HR [Suspect]
     Active Substance: ESOMEPRAZOLE MAGNESIUM
     Indication: GASTROOESOPHAGEAL REFLUX DISEASE
     Route: 048
     Dates: start: 201501, end: 2019
  37. PRILOSEC OTC [Suspect]
     Active Substance: OMEPRAZOLE MAGNESIUM
     Indication: GASTROOESOPHAGEAL REFLUX DISEASE
     Route: 048
     Dates: start: 2003, end: 2019
  38. SPIRONOLACTONE. [Concomitant]
     Active Substance: SPIRONOLACTONE
     Dates: start: 20120717
  39. KETOROLAC [Concomitant]
     Active Substance: KETOROLAC TROMETHAMINE
     Dosage: UNKNOWN
  40. LIDOCAINE. [Concomitant]
     Active Substance: LIDOCAINE
     Dosage: UNKNOWN
  41. TRAZODONE [Concomitant]
     Active Substance: TRAZODONE HYDROCHLORIDE
     Dosage: UNKNOWN
  42. POLYETYLENE GLYCOL [Concomitant]
     Dosage: UNKNOWN
  43. MAGNESIUM CITRATE. [Concomitant]
     Active Substance: MAGNESIUM CITRATE
     Dosage: UNKNOWN
  44. METOCLOPRAMIDE. [Concomitant]
     Active Substance: METOCLOPRAMIDE
     Dosage: UNKNOWN
     Dates: start: 20160723
  45. FLUCONAZOLE. [Concomitant]
     Active Substance: FLUCONAZOLE
     Dosage: UNKNOWN
     Dates: start: 20160723
  46. TRIAMCINOLON [Concomitant]
     Dosage: UNKNOWN
     Dates: start: 20160723
  47. ESOMEPRAZOLE. [Suspect]
     Active Substance: ESOMEPRAZOLE MAGNESIUM
     Indication: GASTROOESOPHAGEAL REFLUX DISEASE
     Route: 048
     Dates: start: 20150313, end: 20150424
  48. OMEPRAZOLE. [Suspect]
     Active Substance: OMEPRAZOLE
     Indication: GASTROOESOPHAGEAL REFLUX DISEASE
     Dosage: GENERIC
     Route: 048
     Dates: start: 20190313, end: 20190413
  49. ZEGERID [Suspect]
     Active Substance: OMEPRAZOLE\SODIUM BICARBONATE
     Indication: GASTROOESOPHAGEAL REFLUX DISEASE
     Route: 065
  50. DICLOFENAC [Concomitant]
     Active Substance: DICLOFENAC
     Dates: start: 201503, end: 201605
  51. AZITHROMYCIN ANHYDROUS. [Concomitant]
     Active Substance: AZITHROMYCIN ANHYDROUS
     Dates: start: 201507, end: 201901
  52. ASPIRIN. [Concomitant]
     Active Substance: ASPIRIN
     Dates: start: 201410, end: 201903
  53. TUMS [Concomitant]
     Active Substance: CALCIUM CARBONATE
     Dates: start: 201507, end: 201905
  54. VITAMIN D3 [Concomitant]
     Active Substance: CHOLECALCIFEROL
     Dosage: UNKNOWN
  55. FERROUS SULFATE. [Concomitant]
     Active Substance: FERROUS SULFATE
     Dosage: UNKNOWN
     Dates: start: 20160723
  56. BACITRACIN. [Concomitant]
     Active Substance: BACITRACIN
     Dosage: UNKNOWN
     Dates: start: 20160723
  57. PRILOSEC [Suspect]
     Active Substance: OMEPRAZOLE MAGNESIUM
     Indication: GASTROOESOPHAGEAL REFLUX DISEASE
     Route: 048
  58. MELOXICAM. [Concomitant]
     Active Substance: MELOXICAM
  59. TRAMADOL. [Concomitant]
     Active Substance: TRAMADOL
     Dates: start: 201207, end: 201208
  60. HYDROCHLOROTHIAZIDE. [Concomitant]
     Active Substance: HYDROCHLOROTHIAZIDE
     Dates: start: 20130702
  61. MORPHINE [Concomitant]
     Active Substance: MORPHINE
     Dosage: UNKNOWN
  62. HYDROMORPHONE [Concomitant]
     Active Substance: HYDROMORPHONE
     Dosage: UNKNOWN
  63. TRADJENTA [Concomitant]
     Active Substance: LINAGLIPTIN
     Dosage: UNKNOWN
  64. FAMOTIDINE. [Concomitant]
     Active Substance: FAMOTIDINE
     Dosage: UNKNOWN
     Dates: start: 20160723
  65. DEXAMETHASONE. [Concomitant]
     Active Substance: DEXAMETHASONE
     Dosage: UNKNOWN
     Dates: start: 20160723
  66. BIOTIN [Concomitant]
     Active Substance: BIOTIN
     Dosage: UNKNOWN
     Dates: start: 20160723
  67. PREVACID [Suspect]
     Active Substance: LANSOPRAZOLE
     Indication: GASTROOESOPHAGEAL REFLUX DISEASE
     Dosage: LANSOPRAZOLE
     Route: 065
  68. PANTOPRAZOLE IV [Suspect]
     Active Substance: PANTOPRAZOLE SODIUM
     Indication: GASTROOESOPHAGEAL REFLUX DISEASE
     Route: 042
     Dates: start: 201901, end: 201903
  69. DOXYCYCLINE. [Concomitant]
     Active Substance: DOXYCYCLINE
  70. TIZANIDINE. [Concomitant]
     Active Substance: TIZANIDINE
     Dosage: UNKNOWN
  71. ZOFRAN [Concomitant]
     Active Substance: ONDANSETRON HYDROCHLORIDE
     Dosage: UNKNOWN
  72. HYDROCODONE [Concomitant]
     Active Substance: HYDROCODONE
     Dosage: UNKNOWN
  73. GLIPIZDE [Concomitant]
     Active Substance: GLIPIZIDE
     Dosage: UNKNOWN
  74. METOPROLOL SUCCINATE. [Concomitant]
     Active Substance: METOPROLOL SUCCINATE
     Dosage: UNKNOWN
     Dates: start: 20160723
  75. COLCHICINE. [Concomitant]
     Active Substance: COLCHICINE
     Dosage: UNKNOWN
     Dates: start: 20160723
  76. PREVACID [Suspect]
     Active Substance: LANSOPRAZOLE
     Indication: GASTROOESOPHAGEAL REFLUX DISEASE
     Route: 065
  77. LOVASTATIN. [Concomitant]
     Active Substance: LOVASTATIN
     Dates: start: 201709, end: 201712
  78. DULOXETINE. [Concomitant]
     Active Substance: DULOXETINE
     Dosage: UNKNOWN
  79. SUCRALFATE. [Concomitant]
     Active Substance: SUCRALFATE
     Dosage: UNKNOWN
  80. DICYCLOMINE [Concomitant]
     Active Substance: DICYCLOMINE HYDROCHLORIDE
     Dosage: UNKNOWN
  81. CANAGLIFLOZIN [Concomitant]
     Active Substance: CANAGLIFLOZIN
     Dosage: UNKNOWN
  82. TRULICITY [Concomitant]
     Active Substance: DULAGLUTIDE
     Dosage: UNKNOWN
     Dates: start: 20160723
  83. METHYLDOPA. [Concomitant]
     Active Substance: METHYLDOPA
     Dosage: UNKNOWN
     Dates: start: 20160723

REACTIONS (13)
  - Dysuria [Unknown]
  - Nephrogenic anaemia [Unknown]
  - Hypertensive nephropathy [Unknown]
  - Diabetic nephropathy [Unknown]
  - Nephropathy [Unknown]
  - Chronic kidney disease [Not Recovered/Not Resolved]
  - Acute kidney injury [Unknown]
  - Pollakiuria [Unknown]
  - Proteinuria [Unknown]
  - Microalbuminuria [Unknown]
  - End stage renal disease [Unknown]
  - Nephrosclerosis [Unknown]
  - Renal impairment [Unknown]
